FAERS Safety Report 16261661 (Version 2)
Quarter: 2019Q2

REPORT INFORMATION
  Report Type: Spontaneous
  Country: US (occurrence: US)
  Receive Date: 20190501
  Receipt Date: 20190627
  Transmission Date: 20190711
  Serious: No
  Sender: FDA-Public Use
  Company Number: US-LEXICON PHARMACEUTICALS, INC-19-1606-00454

PATIENT
  Sex: Female

DRUGS (2)
  1. TELOTRISTAT ETHYL [Suspect]
     Active Substance: TELOTRISTAT ETHYL
     Indication: CARCINOID SYNDROME
     Route: 048
     Dates: start: 20170516
  2. SOMATULINE [Concomitant]
     Active Substance: LANREOTIDE ACETATE
     Route: 065

REACTIONS (8)
  - Malaise [Not Recovered/Not Resolved]
  - Flushing [Not Recovered/Not Resolved]
  - Diarrhoea [Not Recovered/Not Resolved]
  - Platelet count decreased [Not Recovered/Not Resolved]
  - White blood cell count decreased [Not Recovered/Not Resolved]
  - Product dose omission [Unknown]
  - Fatigue [Not Recovered/Not Resolved]
  - Abdominal pain [Not Recovered/Not Resolved]
